FAERS Safety Report 11814739 (Version 1)
Quarter: 2015Q4

REPORT INFORMATION
  Report Type: Spontaneous
  Country: FR (occurrence: FR)
  Receive Date: 20151209
  Receipt Date: 20151209
  Transmission Date: 20160305
  Serious: Yes (Hospitalization, Disabling)
  Sender: FDA-Public Use
  Company Number: FR-ABBVIE-15K-056-1513580-00

PATIENT
  Age: 38 Year
  Sex: Male

DRUGS (2)
  1. HUMIRA [Suspect]
     Active Substance: ADALIMUMAB
     Indication: ANKYLOSING SPONDYLITIS
     Route: 058
     Dates: start: 201503, end: 20151010
  2. ENBREL [Suspect]
     Active Substance: ETANERCEPT
     Indication: ANKYLOSING SPONDYLITIS
     Route: 065
     Dates: start: 201305, end: 201503

REACTIONS (5)
  - Optic neuritis [Recovering/Resolving]
  - Visual acuity reduced [Unknown]
  - Ophthalmoplegia [Recovered/Resolved]
  - Ophthalmoplegia [Unknown]
  - Demyelination [Not Recovered/Not Resolved]

NARRATIVE: CASE EVENT DATE: 2015
